FAERS Safety Report 10532270 (Version 1)
Quarter: 2014Q4

REPORT INFORMATION
  Report Type: Spontaneous
  Country: US (occurrence: US)
  Receive Date: 20141021
  Receipt Date: 20141021
  Transmission Date: 20150529
  Serious: No
  Sender: FDA-Public Use
  Company Number: US-MYLANLABS-2014SP004570

PATIENT
  Sex: Female

DRUGS (32)
  1. LORAZEPAM. [Suspect]
     Active Substance: LORAZEPAM
     Indication: PRODUCT USED FOR UNKNOWN INDICATION
  2. MUCINEX [Suspect]
     Active Substance: GUAIFENESIN
  3. LEXAPRO [Concomitant]
     Active Substance: ESCITALOPRAM OXALATE
  4. VITAMIN B [Concomitant]
     Active Substance: VITAMIN B
  5. LOSARTAN [Concomitant]
     Active Substance: LOSARTAN
  6. SERTRALINE [Suspect]
     Active Substance: SERTRALINE HYDROCHLORIDE
  7. METRONIDAZOLE TABLETS BP 400 MG [Suspect]
     Active Substance: METRONIDAZOLE
  8. PROBIOTIC                          /06395501/ [Concomitant]
  9. SYNTHROID [Concomitant]
     Active Substance: LEVOTHYROXINE SODIUM
  10. KEPPRA [Concomitant]
     Active Substance: LEVETIRACETAM
  11. FOLIC ACID. [Concomitant]
     Active Substance: FOLIC ACID
  12. NEXIUM [Concomitant]
     Active Substance: ESOMEPRAZOLE MAGNESIUM
  13. INDOMETHACIN                       /00003801/ [Concomitant]
     Active Substance: INDOMETHACIN
     Indication: HEADACHE
  14. SINGULAIR [Concomitant]
     Active Substance: MONTELUKAST SODIUM
  15. AMBIEN [Concomitant]
     Active Substance: ZOLPIDEM TARTRATE
  16. NASACORT AQ [Concomitant]
     Active Substance: TRIAMCINOLONE ACETONIDE
  17. ATORVASTATIN CALCIUM. [Suspect]
     Active Substance: ATORVASTATIN CALCIUM
  18. OTHER CEPHALOSPORINS [Suspect]
     Active Substance: UNSPECIFIED INGREDIENT
  19. METOCLOPRAMIDE. [Suspect]
     Active Substance: METOCLOPRAMIDE
  20. XOPENEX [Concomitant]
     Active Substance: LEVALBUTEROL HYDROCHLORIDE
  21. ESTRACE [Concomitant]
     Active Substance: ESTRADIOL
  22. PENICILLIN /00001805/ [Suspect]
     Active Substance: PENICILLIN V BENZATHINE
  23. KEPPRA [Concomitant]
     Active Substance: LEVETIRACETAM
  24. METHOTREXATE [Suspect]
     Active Substance: METHOTREXATE
     Indication: PRODUCT USED FOR UNKNOWN INDICATION
  25. LYRICA [Suspect]
     Active Substance: PREGABALIN
  26. ACE INHIBITORS [Suspect]
     Active Substance: UNSPECIFIED INGREDIENT
  27. LEXAPRO [Concomitant]
     Active Substance: ESCITALOPRAM OXALATE
  28. KEPPRA [Concomitant]
     Active Substance: LEVETIRACETAM
  29. MULTIVITAMINS [Concomitant]
     Active Substance: VITAMINS
  30. VITAMIN D                          /00107901/ [Concomitant]
     Active Substance: ERGOCALCIFEROL
  31. HCTZ [Concomitant]
     Active Substance: HYDROCHLOROTHIAZIDE
  32. LIVALO [Concomitant]
     Active Substance: PITAVASTATIN CALCIUM

REACTIONS (3)
  - Fatigue [Unknown]
  - Drug hypersensitivity [Unknown]
  - Myalgia [Unknown]
